FAERS Safety Report 4631217-9 (Version None)
Quarter: 2005Q2

REPORT INFORMATION
  Report Type: 
  Country: None (occurrence: None)
  Receive Date: 20050407
  Receipt Date: 20050407
  Transmission Date: 20051028
  Serious: Yes (Hospitalization)
  Sender: FDA-Public Use
  Company Number: None

PATIENT
  Age: 63 Year
  Sex: Male
  Weight: 53.0709 kg

DRUGS (5)
  1. DOXORUBICIN HCL [Suspect]
     Indication: PROSTATE CANCER
     Dosage: Q WEEK X 3 WEEKS IV
     Route: 042
     Dates: start: 20041129, end: 20050330
  2. TAXOTERE [Suspect]
     Indication: PROSTATE CANCER
     Dosage: Q WEEK X 3 WEEKS   IV
     Route: 042
     Dates: start: 20041129, end: 20050330
  3. HYDROCHLOROTHIAZIDE [Concomitant]
  4. VITAMIN B6 [Concomitant]
  5. LASIX [Concomitant]

REACTIONS (8)
  - ANAEMIA [None]
  - CARDIAC MURMUR [None]
  - CHILLS [None]
  - DIARRHOEA [None]
  - DYSPNOEA EXERTIONAL [None]
  - FEBRILE NEUTROPENIA [None]
  - OEDEMA PERIPHERAL [None]
  - PRODUCTIVE COUGH [None]
